FAERS Safety Report 9953541 (Version 1)
Quarter: 2014Q1

REPORT INFORMATION
  Report Type: Spontaneous
  Country: JP (occurrence: JP)
  Receive Date: 20140304
  Receipt Date: 20140304
  Transmission Date: 20141002
  Serious: Yes (Death)
  Sender: FDA-Public Use
  Company Number: JP-JNJFOC-20140300540

PATIENT
  Age: 77 Year
  Sex: Male

DRUGS (2)
  1. FINIBAX [Suspect]
     Indication: PYELONEPHRITIS
     Dosage: 0.50 G/DAY DR
     Route: 042
     Dates: start: 20140214, end: 20140219
  2. FINIBAX [Suspect]
     Indication: PYELONEPHRITIS
     Dosage: 0.75 G/DAY DR
     Route: 042
     Dates: start: 20140220, end: 20140227

REACTIONS (1)
  - Pneumonia fungal [Fatal]
